FAERS Safety Report 21137532 (Version 1)
Quarter: 2022Q3

REPORT INFORMATION
  Report Type: Spontaneous
  Country: US (occurrence: None)
  Receive Date: 20220727
  Receipt Date: 20220727
  Transmission Date: 20221026
  Serious: No
  Sender: FDA-Public Use
  Company Number: None

PATIENT
  Age: 59 Year
  Sex: Male

DRUGS (1)
  1. AMBRISENTAN [Suspect]
     Active Substance: AMBRISENTAN
     Indication: Pulmonary arterial hypertension
     Dosage: FREQUENCY : DAILY;?
     Route: 048
     Dates: start: 20220401

REACTIONS (8)
  - Dyspepsia [None]
  - Headache [None]
  - Abdominal pain upper [None]
  - Nausea [None]
  - Dyspnoea [None]
  - Pain [None]
  - Ascites [None]
  - Incorrect dose administered [None]

NARRATIVE: CASE EVENT DATE: 20220719
